FAERS Safety Report 6337854-8 (Version None)
Quarter: 2009Q3

REPORT INFORMATION
  Report Type: 
  Country: None (occurrence: None)
  Receive Date: 20090902
  Receipt Date: 20090824
  Transmission Date: 20100115
  Serious: Yes (Hospitalization)
  Sender: FDA-Public Use
  Company Number: B0588121A

PATIENT
  Sex: Male

DRUGS (3)
  1. LAMICTAL [Suspect]
     Indication: PARTIAL SEIZURES
     Dosage: 4MG PER DAY
     Route: 048
     Dates: start: 20090809, end: 20090810
  2. MYSTAN [Concomitant]
     Indication: PARTIAL SEIZURES
     Dosage: 12MG PER DAY
     Route: 048
     Dates: start: 20090805
  3. SELENICA R [Concomitant]
     Indication: PARTIAL SEIZURES
     Dosage: 600MG PER DAY
     Route: 048
     Dates: start: 20090721

REACTIONS (10)
  - BLOOD BILIRUBIN DECREASED [None]
  - BLOOD CREATININE DECREASED [None]
  - BLOOD LACTATE DEHYDROGENASE INCREASED [None]
  - CONJUNCTIVAL HYPERAEMIA [None]
  - DRUG ERUPTION [None]
  - ERYTHEMA [None]
  - HAEMOGLOBIN DECREASED [None]
  - PYREXIA [None]
  - RASH [None]
  - RED BLOOD CELL COUNT DECREASED [None]
